FAERS Safety Report 22077939 (Version 1)
Quarter: 2023Q1

REPORT INFORMATION
  Report Type: Report from Study
  Country: US (occurrence: None)
  Receive Date: 20230309
  Receipt Date: 20230309
  Transmission Date: 20230418
  Serious: Yes (Hospitalization, Other)
  Sender: FDA-Public Use
  Company Number: US-ROCHE-2524583

PATIENT
  Age: 66 Year
  Sex: Male
  Weight: 81.1 kg

DRUGS (2)
  1. ATEZOLIZUMAB [Suspect]
     Active Substance: ATEZOLIZUMAB
     Indication: Transitional cell carcinoma metastatic
     Dosage: ON DAY 8
     Route: 041
     Dates: start: 20191209
  2. INTERLEUKIN-7 HUMAN RECOMBINANT [Suspect]
     Active Substance: INTERLEUKIN-7 HUMAN RECOMBINANT
     Indication: Transitional cell carcinoma metastatic
     Dosage: 10 MCG/KG IM ON DAYS 1, 8, 15 AND 22?MOST RECENT DOSE: 23/DEC/2019 (2640 MICROG)
     Route: 030
     Dates: start: 20191204

REACTIONS (6)
  - Pyrexia [Recovered/Resolved]
  - Upper respiratory tract infection [Not Recovered/Not Resolved]
  - Dyspnoea [Recovered/Resolved]
  - Pneumonia [Unknown]
  - Myocardial infarction [Unknown]
  - Embolism [Unknown]

NARRATIVE: CASE EVENT DATE: 20191226
